FAERS Safety Report 24134739 (Version 1)
Quarter: 2024Q3

REPORT INFORMATION
  Report Type: Other
  Country: TR (occurrence: TR)
  Receive Date: 20240725
  Receipt Date: 20240725
  Transmission Date: 20241016
  Serious: Yes (Life-Threatening, Hospitalization, Other)
  Sender: DEXCEL
  Company Number: TR-DEXPHARM-2024-2411

PATIENT
  Age: 39 Year
  Sex: Male

DRUGS (1)
  1. DICLOFENAC POTASSIUM [Suspect]
     Active Substance: DICLOFENAC POTASSIUM
     Indication: Headache

REACTIONS (3)
  - Kounis syndrome [Unknown]
  - Hypersensitivity [Recovered/Resolved]
  - Coronary artery dissection [Recovered/Resolved]
